FAERS Safety Report 4485229-9 (Version None)
Quarter: 2004Q4

REPORT INFORMATION
  Report Type: 
  Country: None (occurrence: None)
  Receive Date: 20041026
  Receipt Date: 20040722
  Transmission Date: 20050328
  Serious: No
  Sender: FDA-Public Use
  Company Number: US-BRISTOL-MYERS SQUIBB COMPANY-12648804

PATIENT
  Age: 43 Year
  Sex: Female
  Weight: 70 kg

DRUGS (2)
  1. GLUCOPHAGE XR [Suspect]
     Indication: POLYCYSTIC OVARIES
     Dosage: DAILY DOSE WAS INCREASED TO 1000 MILLIGRAMS ON AN UNSPECIFIED DATE.
     Route: 048
  2. THYROID TAB [Concomitant]
     Dosage: DURATION OF THERAPY:  ^YEARS^

REACTIONS (1)
  - ABDOMINAL DISTENSION [None]
